FAERS Safety Report 7984499-X (Version None)
Quarter: 2011Q4

REPORT INFORMATION
  Report Type: 
  Country: None (occurrence: None)
  Receive Date: 20111216
  Receipt Date: 20111204
  Transmission Date: 20120403
  Serious: Yes (Hospitalization)
  Sender: FDA-Public Use
  Company Number: DE-MYLANLABS-2011S1024858

PATIENT
  Age: 40 Year
  Sex: Female
  Weight: 65 kg

DRUGS (6)
  1. PANTOPRAZOLE [Suspect]
     Route: 048
     Dates: start: 20111204
  2. IRON [Suspect]
     Route: 048
     Dates: start: 20111204
  3. TRAMADOL HCL [Suspect]
     Route: 048
     Dates: start: 20111204
  4. AMITRIPTYLINE HCL [Suspect]
     Route: 048
     Dates: start: 20111204
  5. IBUPROFEN [Suspect]
     Route: 048
     Dates: start: 20111204
  6. ACETAMINOPHEN [Suspect]
     Route: 048
     Dates: start: 20111204

REACTIONS (5)
  - OVERDOSE [None]
  - SUICIDE ATTEMPT [None]
  - GASTROINTESTINAL SOUNDS ABNORMAL [None]
  - HYPOTONIA [None]
  - SOMNOLENCE [None]
